FAERS Safety Report 16218953 (Version 2)
Quarter: 2019Q2

REPORT INFORMATION
  Report Type: Report from Study
  Country: CH (occurrence: CH)
  Receive Date: 20190419
  Receipt Date: 20190423
  Transmission Date: 20190711
  Serious: Yes (Life-Threatening, Hospitalization)
  Sender: FDA-Public Use
  Company Number: CH-ASTRAZENECA-2019SE51389

PATIENT
  Age: 51 Year
  Sex: Male

DRUGS (4)
  1. MEDI4736 [Suspect]
     Active Substance: DURVALUMAB
     Indication: TRANSITIONAL CELL CARCINOMA
     Dosage: 1500 MG
     Route: 042
     Dates: start: 20181212, end: 20190214
  2. CISPLATIN. [Suspect]
     Active Substance: CISPLATIN
     Indication: TRANSITIONAL CELL CARCINOMA
     Dosage: 133 MG
     Route: 042
     Dates: start: 20181121, end: 20190124
  3. SURGERY [Suspect]
     Active Substance: UNSPECIFIED INGREDIENT
     Indication: TRANSITIONAL CELL CARCINOMA
     Route: 065
     Dates: start: 20190322
  4. GEMCITABINE [Suspect]
     Active Substance: GEMCITABINE\GEMCITABINE HYDROCHLORIDE
     Indication: TRANSITIONAL CELL CARCINOMA
     Dosage: 1900 MG
     Route: 042
     Dates: start: 20181121, end: 20190131

REACTIONS (1)
  - Anastomotic complication [Not Recovered/Not Resolved]

NARRATIVE: CASE EVENT DATE: 20190331
